FAERS Safety Report 7966091-6 (Version None)
Quarter: 2011Q4

REPORT INFORMATION
  Report Type: 
  Country: None (occurrence: None)
  Receive Date: 20111208
  Receipt Date: 20111128
  Transmission Date: 20120403
  Serious: Yes (Hospitalization, Other)
  Sender: FDA-Public Use
  Company Number: US-JNJFOC-20111111784

PATIENT
  Sex: Male
  Weight: 87.09 kg

DRUGS (3)
  1. LEVOTHYROXINE SODIUM [Concomitant]
     Indication: THYROID DISORDER
     Dosage: 100MCG DAILY
     Route: 048
     Dates: start: 20060101, end: 20111101
  2. REMICADE [Suspect]
     Indication: CROHN'S DISEASE
     Route: 042
     Dates: start: 20111020
  3. REMICADE [Suspect]
     Route: 042
     Dates: start: 20111103, end: 20111114

REACTIONS (13)
  - FEELING ABNORMAL [None]
  - VASCULITIS [None]
  - CHILLS [None]
  - GAIT DISTURBANCE [None]
  - PAIN [None]
  - DIARRHOEA [None]
  - WEIGHT DECREASED [None]
  - RENAL IMPAIRMENT [None]
  - BIOPSY KIDNEY ABNORMAL [None]
  - HEADACHE [None]
  - VOMITING [None]
  - VISUAL IMPAIRMENT [None]
  - ILL-DEFINED DISORDER [None]
